FAERS Safety Report 6104011-X (Version None)
Quarter: 2009Q1

REPORT INFORMATION
  Report Type: 
  Country: None (occurrence: None)
  Receive Date: 20090305
  Receipt Date: 20090220
  Transmission Date: 20090719
  Serious: Yes (Hospitalization, Other)
  Sender: FDA-Public Use
  Company Number: FR-ELI_LILLY_AND_COMPANY-FR200812001844

PATIENT
  Age: 34 Year
  Sex: Male
  Weight: 100 kg

DRUGS (6)
  1. ALIMTA [Suspect]
     Indication: LARGE CELL CARCINOMA OF THE RESPIRATORY TRACT STAGE UNSPECIFIED
     Dosage: 500 MG/M2, DAY 1 EVERY 21 DAYS
     Route: 042
     Dates: start: 20080926
  2. ALIMTA [Suspect]
     Dosage: 500 MG/M2, DAY 1 EVERY 21 DAYS
     Route: 042
  3. CISPLATIN [Concomitant]
     Indication: LARGE CELL CARCINOMA OF THE RESPIRATORY TRACT STAGE UNSPECIFIED
     Dosage: 75 MG/M2, UNKNOWN
     Route: 042
     Dates: start: 20080926
  4. FOLIC ACID [Concomitant]
     Indication: PROPHYLAXIS
  5. VITAMIN B-12 [Concomitant]
     Indication: PROPHYLAXIS
  6. CORTICOSTEROIDS [Concomitant]
     Indication: PROPHYLAXIS

REACTIONS (2)
  - NEUTROPENIA [None]
  - RADIATION OESOPHAGITIS [None]
